FAERS Safety Report 5427022-6 (Version None)
Quarter: 2007Q3

REPORT INFORMATION
  Report Type: 
  Country: None (occurrence: None)
  Receive Date: 20070731
  Receipt Date: 20070502
  Transmission Date: 20080115
  Serious: No
  Sender: FDA-Public Use
  Company Number: US200705000708

PATIENT
  Age: 62 Year
  Sex: Male
  Weight: 84.8 kg

DRUGS (5)
  1. BYETTA [Suspect]
     Indication: DIABETES MELLITUS
     Dosage: 5 UG, 2/D, SUBCUTANEOUS 10 UG, 2/D,
     Route: 058
     Dates: start: 20070127, end: 20070201
  2. BYETTA [Suspect]
     Indication: DIABETES MELLITUS
     Dosage: 5 UG, 2/D, SUBCUTANEOUS 10 UG, 2/D,
     Route: 058
     Dates: start: 20070201
  3. AVANDIA [Concomitant]
  4. GLUCOTROL [Concomitant]
  5. METFORMIN HCL [Concomitant]

REACTIONS (3)
  - BLOOD CHOLESTEROL DECREASED [None]
  - NAUSEA [None]
  - WEIGHT DECREASED [None]
